FAERS Safety Report 9792312 (Version 2)
Quarter: 2014Q2

REPORT INFORMATION
  Report Type: Other
  Country: IT (occurrence: IT)
  Receive Date: 20140102
  Receipt Date: 20140409
  Transmission Date: 20141212
  Serious: Yes (Other)
  Sender: FDA-Public Use
  Company Number: IT-CUBIST PHARMACEUTICAL, INC.-2013CBST001461

PATIENT
  Sex: 0

DRUGS (6)
  1. CUBICIN [Suspect]
     Indication: SEPSIS
     Dosage: 500 MG, QD
     Route: 042
     Dates: start: 20131031
  2. CUBICIN [Suspect]
     Indication: OFF LABEL USE
     Dosage: DOSE REDUCED UNK
     Route: 042
  3. MERREM [Suspect]
     Indication: SEPSIS
     Dosage: 3 G, QD
     Route: 042
     Dates: start: 20131026
  4. MERREM [Suspect]
     Dosage: DOSE REDUCED UNK
     Route: 042
  5. MICAFUNGIN [Suspect]
     Indication: SEPSIS
     Dosage: 100 MG, QD
     Route: 042
     Dates: start: 20131029
  6. MICAFUNGIN [Suspect]
     Dosage: DOSE REDUCED UNK
     Route: 042

REACTIONS (1)
  - Renal failure acute [Not Recovered/Not Resolved]
